FAERS Safety Report 20911062 (Version 1)
Quarter: 2022Q2

REPORT INFORMATION
  Report Type: Spontaneous
  Country: US (occurrence: None)
  Receive Date: 20220602
  Receipt Date: 20220602
  Transmission Date: 20220721
  Serious: Yes (Other)
  Sender: FDA-Public Use
  Company Number: None

PATIENT
  Age: 65 Year
  Sex: Female
  Weight: 68.85 kg

DRUGS (16)
  1. ASENAPINE [Suspect]
     Active Substance: ASENAPINE
     Indication: Bipolar disorder
     Dosage: FREQUENCY : AT BEDTIME;?OTHER ROUTE : SUBLINGUAL;?
     Route: 050
  2. LAMOTRIGINE [Concomitant]
  3. NEXIUM [Concomitant]
  4. AMLODIPINE [Concomitant]
  5. LEVOTHYROXINE [Concomitant]
     Active Substance: LEVOTHYROXINE
  6. ROSUVASTATIN [Concomitant]
     Active Substance: ROSUVASTATIN
  7. RESODRONATE SODIUM DIVAPROEX SOD [Concomitant]
  8. LITHIUM [Concomitant]
  9. LARAZEPAM [Concomitant]
  10. ASENAPINE [Concomitant]
     Active Substance: ASENAPINE
  11. VITAMIN B [Concomitant]
     Active Substance: VITAMIN B
  12. VITAMIN C [Concomitant]
     Active Substance: ASCORBIC ACID
  13. VITAMIN E [Concomitant]
     Active Substance: .ALPHA.-TOCOPHEROL
  14. VITAMIN D [Concomitant]
     Active Substance: VITAMIN D NOS
  15. CALCIUM [Concomitant]
  16. LUTEIN [Concomitant]
     Active Substance: LUTEIN

REACTIONS (1)
  - Burn oral cavity [None]

NARRATIVE: CASE EVENT DATE: 20220601
